FAERS Safety Report 16006669 (Version 1)
Quarter: 2019Q1

REPORT INFORMATION
  Report Type: Spontaneous
  Country: US (occurrence: US)
  Receive Date: 20190226
  Receipt Date: 20190226
  Transmission Date: 20190418
  Serious: No
  Sender: FDA-Public Use
  Company Number: US-ARBOR PHARMACEUTICALS, LLC-US-2019ARB000040

PATIENT
  Sex: Female

DRUGS (1)
  1. OTOVEL [Suspect]
     Active Substance: CIPROFLOXACIN\FLUOCINOLONE ACETONIDE
     Indication: EAR PAIN
     Dosage: UNK

REACTIONS (2)
  - Pain [Unknown]
  - Off label use [Unknown]
